FAERS Safety Report 26051881 (Version 2)
Quarter: 2025Q4

REPORT INFORMATION
  Report Type: Report from Study
  Country: CA (occurrence: CA)
  Receive Date: 20251117
  Receipt Date: 20251214
  Transmission Date: 20260118
  Serious: Yes (Life-Threatening, Hospitalization, Other)
  Sender: CELLTRION
  Company Number: CA-CELLTRION INC.-2025CA041240

PATIENT

DRUGS (2)
  1. ADALIMUMAB-AATY [Suspect]
     Active Substance: ADALIMUMAB-AATY
     Indication: Rheumatoid arthritis
     Dosage: MAINTENANCE - 40 MG - EVERY 2 WEEKS
     Route: 058
     Dates: start: 20250331
  2. ADALIMUMAB-AATY [Suspect]
     Active Substance: ADALIMUMAB-AATY

REACTIONS (3)
  - Legionella infection [Unknown]
  - Pneumonia [Unknown]
  - Immune system disorder [Unknown]

NARRATIVE: CASE EVENT DATE: 20251001
